FAERS Safety Report 9222608 (Version 2)
Quarter: 2013Q2

REPORT INFORMATION
  Report Type: Report from Study
  Country: AU (occurrence: AU)
  Receive Date: 20130410
  Receipt Date: 20130502
  Transmission Date: 20140414
  Serious: Yes (Other)
  Sender: FDA-Public Use
  Company Number: AU-ROCHE-1208749

PATIENT
  Age: 40 Year
  Sex: Female

DRUGS (1)
  1. ALTEPLASE [Suspect]
     Indication: CAROTID ARTERY THROMBOSIS
     Route: 042

REACTIONS (1)
  - Neurological decompensation [Recovered/Resolved]
